FAERS Safety Report 15482617 (Version 1)
Quarter: 2018Q4

REPORT INFORMATION
  Report Type: Spontaneous
  Country: ES (occurrence: ES)
  Receive Date: 20181010
  Receipt Date: 20181010
  Transmission Date: 20190205
  Serious: Yes (Other)
  Sender: FDA-Public Use
  Company Number: ES-MYLANLABS-2018M1072840

PATIENT
  Age: 52 Year
  Sex: Male

DRUGS (1)
  1. KETOROLAC [Suspect]
     Active Substance: KETOROLAC\KETOROLAC TROMETHAMINE
     Indication: IMMUNE TOLERANCE INDUCTION
     Dosage: 13 MG
     Route: 045

REACTIONS (4)
  - Forced expiratory volume decreased [Unknown]
  - Abdominal pain [Unknown]
  - Pulmonary function test decreased [Unknown]
  - Angioedema [Unknown]
